FAERS Safety Report 6429105-0 (Version None)
Quarter: 2009Q4

REPORT INFORMATION
  Report Type: 
  Country: None (occurrence: None)
  Receive Date: 20091105
  Receipt Date: 20091102
  Transmission Date: 20100525
  Serious: Yes (Death, Other)
  Sender: FDA-Public Use
  Company Number: JP-EISAI INC.-E2020-05470-SPO-JP

PATIENT
  Age: 81 Year
  Sex: Female
  Weight: 42 kg

DRUGS (8)
  1. ARICEPT [Suspect]
     Indication: DEMENTIA ALZHEIMER'S TYPE
     Route: 048
     Dates: end: 20090402
  2. ARICEPT [Suspect]
     Route: 048
     Dates: start: 20090403, end: 20090713
  3. LASIX [Concomitant]
     Indication: CARDIAC FAILURE
     Route: 048
     Dates: start: 20090609, end: 20090613
  4. WARFARIN SODIUM [Concomitant]
     Indication: ATRIAL FIBRILLATION
     Route: 048
     Dates: start: 20090609, end: 20090613
  5. LANSOPRAZOLE [Concomitant]
     Route: 048
  6. ASPIRIN [Concomitant]
  7. PREDONINE [Concomitant]
     Route: 048
  8. DEPAS [Concomitant]
     Route: 048

REACTIONS (2)
  - ATRIAL FIBRILLATION [None]
  - CARDIO-RESPIRATORY ARREST [None]
